FAERS Safety Report 6732517-9 (Version None)
Quarter: 2010Q2

REPORT INFORMATION
  Report Type: 
  Country: None (occurrence: None)
  Receive Date: 20100519
  Receipt Date: 20100503
  Transmission Date: 20101027
  Serious: Yes (Hospitalization, Other)
  Sender: FDA-Public Use
  Company Number: US-BAYER-201014268NA

PATIENT
  Age: 21 Year
  Sex: Female
  Weight: 59 kg

DRUGS (9)
  1. YAZ [Suspect]
     Indication: CONTRACEPTION
     Dosage: DISCREPANCIES IN THE PFS ABOUTTHE START DATE: 05-NOV-2006 ON PG 25 AND 05-NOV-2007 ON PAGE 18
     Route: 048
     Dates: end: 20080801
  2. DOXYCYCLIN [Concomitant]
     Route: 065
     Dates: start: 20070127, end: 20070205
  3. DOXYCYCLIN [Concomitant]
     Route: 065
     Dates: start: 20070626, end: 20070704
  4. ALEVE (CAPLET) [Concomitant]
     Route: 065
     Dates: start: 20000101
  5. RISPERDAL [Concomitant]
     Route: 065
  6. FLUOXETINE [Concomitant]
     Route: 065
  7. LITHIUM [Concomitant]
     Route: 065
  8. CLONAZEPAM [Concomitant]
     Route: 065
  9. TRAZODONE HCL [Concomitant]
     Route: 065

REACTIONS (5)
  - ABDOMINAL PAIN UPPER [None]
  - CHOLELITHIASIS [None]
  - NAUSEA [None]
  - PANCREATITIS [None]
  - VOMITING [None]
